FAERS Safety Report 7503810-7 (Version None)
Quarter: 2011Q2

REPORT INFORMATION
  Report Type: 
  Country: None (occurrence: None)
  Receive Date: 20110525
  Receipt Date: 20110519
  Transmission Date: 20111010
  Serious: Yes (Other)
  Sender: FDA-Public Use
  Company Number: DE-BRISTOL-MYERS SQUIBB COMPANY-15767916

PATIENT
  Age: 38 Year
  Sex: Female

DRUGS (2)
  1. ABILIFY [Suspect]
     Dosage: THEN 15MG
     Route: 065
  2. CLOZAPINE [Suspect]
     Route: 065

REACTIONS (2)
  - COMPULSIONS [None]
  - MAJOR DEPRESSION [None]
